FAERS Safety Report 5794621-1 (Version None)
Quarter: 2008Q2

REPORT INFORMATION
  Report Type: 
  Country: None (occurrence: None)
  Receive Date: 20080627
  Receipt Date: 20080627
  Transmission Date: 20081010
  Serious: Yes (Hospitalization)
  Sender: FDA-Public Use
  Company Number: None

PATIENT
  Sex: Female
  Weight: 59.8748 kg

DRUGS (3)
  1. CYMBALTA [Suspect]
     Indication: PAIN
     Dosage: 30MG PO QDAY  X1 DOSE
     Route: 048
  2. BENICAR HCT [Suspect]
     Indication: HYPERTENSION
     Dosage: 40/12.5 MG PO QDAY  PRIOR TO ADMISSION
     Route: 048
  3. PREMARIN [Concomitant]

REACTIONS (3)
  - DIZZINESS [None]
  - NAUSEA [None]
  - VOMITING [None]
